FAERS Safety Report 19846574 (Version 1)
Quarter: 2021Q3

REPORT INFORMATION
  Report Type: Spontaneous
  Country: US (occurrence: US)
  Receive Date: 20210917
  Receipt Date: 20210917
  Transmission Date: 20211014
  Serious: Yes (Death, Hospitalization, Other)
  Sender: FDA-Public Use
  Company Number: US-LUPIN PHARMACEUTICALS INC.-2021-17508

PATIENT
  Age: 67 Year
  Sex: Female

DRUGS (30)
  1. CELECOXIB. [Suspect]
     Active Substance: CELECOXIB
     Indication: PLEURITIC PAIN
     Dosage: UNK
     Route: 065
  2. HYDROMORPHONE [Suspect]
     Active Substance: HYDROMORPHONE
     Indication: PLEURITIC PAIN
     Dosage: INTRATHECAL PAIN PUMP
     Route: 037
  3. CLONIDINE. [Suspect]
     Active Substance: CLONIDINE
     Indication: PLEURITIC PAIN
     Dosage: INTRATHECAL PAIN PUMP
     Route: 037
  4. ETODOLAC. [Suspect]
     Active Substance: ETODOLAC
     Indication: PLEURITIC PAIN
     Dosage: UNK
     Route: 065
  5. TRAZODONE [Suspect]
     Active Substance: TRAZODONE HYDROCHLORIDE
     Indication: PLEURITIC PAIN
     Dosage: UNK
     Route: 065
  6. KETAMINE [Suspect]
     Active Substance: KETAMINE
     Dosage: UNK
     Route: 048
  7. ACETAMINOPHENE [Concomitant]
     Active Substance: ACETAMINOPHEN
     Indication: PLEURITIC PAIN
     Dosage: UNK
     Route: 065
  8. MORPHINE SULPHATE [Suspect]
     Active Substance: MORPHINE SULFATE
     Indication: PLEURITIC PAIN
     Dosage: UNK
     Route: 065
  9. LENVATINIB [Suspect]
     Active Substance: LENVATINIB
     Indication: PRODUCT USED FOR UNKNOWN INDICATION
     Dosage: UNK
     Route: 065
  10. EVEROLIMUS. [Suspect]
     Active Substance: EVEROLIMUS
     Indication: PRODUCT USED FOR UNKNOWN INDICATION
     Dosage: UNK
     Route: 065
  11. KETOROLAC [Suspect]
     Active Substance: KETOROLAC TROMETHAMINE
     Indication: PLEURITIC PAIN
     Dosage: 3.8MG/HOUR (91.2MG/DAY)
     Route: 065
  12. IBUPROFEN. [Suspect]
     Active Substance: IBUPROFEN
     Indication: PLEURITIC PAIN
     Dosage: UNK
     Route: 065
  13. METHADONE [Suspect]
     Active Substance: METHADONE HYDROCHLORIDE
     Indication: PLEURITIC PAIN
     Dosage: UNK
     Route: 065
  14. KETOROLAC [Suspect]
     Active Substance: KETOROLAC TROMETHAMINE
     Dosage: CONTINUOUS INTRAVENOUS INFUSION (CIVI) AT 3MG/HOUR (72MG/DAY)
     Route: 065
  15. INDOMETHACIN. [Suspect]
     Active Substance: INDOMETHACIN
     Indication: PLEURITIC PAIN
     Dosage: UNK
     Route: 065
  16. ALPHA LIPOIC ACID [Suspect]
     Active Substance: .ALPHA.-LIPOIC ACID
     Indication: PLEURITIC PAIN
     Dosage: UNK
     Route: 065
  17. DEXAMETHASONE. [Suspect]
     Active Substance: DEXAMETHASONE
     Indication: PLEURITIC PAIN
     Dosage: UNK
     Route: 065
  18. GABAPENTIN. [Suspect]
     Active Substance: GABAPENTIN
     Indication: PLEURITIC PAIN
     Dosage: UNK
     Route: 065
  19. HYDROMORPHONE [Suspect]
     Active Substance: HYDROMORPHONE
     Indication: PLEURITIC PAIN
  20. NAPROXEN. [Suspect]
     Active Substance: NAPROXEN
     Indication: PLEURITIC PAIN
     Dosage: UNK
     Route: 065
  21. OXYCODONE AND ACETAMINOPHEN [Suspect]
     Active Substance: ACETAMINOPHEN\OXYCODONE HYDROCHLORIDE
     Indication: PLEURITIC PAIN
     Dosage: UNK
     Route: 065
  22. TIZANIDINE. [Suspect]
     Active Substance: TIZANIDINE
     Indication: PLEURITIC PAIN
     Dosage: UNK
     Route: 065
  23. PREGABALIN. [Suspect]
     Active Substance: PREGABALIN
     Indication: PLEURITIC PAIN
     Dosage: UNK
     Route: 065
  24. TRAMADOL. [Suspect]
     Active Substance: TRAMADOL
     Indication: PLEURITIC PAIN
     Dosage: UNK
     Route: 065
  25. LIDOCAINE. [Suspect]
     Active Substance: LIDOCAINE
     Indication: PLEURITIC PAIN
     Dosage: UNK
     Route: 065
  26. NORTRIPTYLINE [Suspect]
     Active Substance: NORTRIPTYLINE
     Indication: PLEURITIC PAIN
     Dosage: UNK
     Route: 065
  27. OMEPRAZOLE. [Concomitant]
     Active Substance: OMEPRAZOLE
     Indication: PROPHYLAXIS
     Route: 065
  28. OXYCODONE [Suspect]
     Active Substance: OXYCODONE
     Route: 065
  29. BUPIVACAINE. [Suspect]
     Active Substance: BUPIVACAINE
     Indication: PLEURITIC PAIN
     Dosage: INTRATHECAL PAIN PUMP
     Route: 037
  30. KETAMINE [Suspect]
     Active Substance: KETAMINE
     Indication: PLEURITIC PAIN
     Dosage: UNK
     Route: 065

REACTIONS (6)
  - Drug ineffective [Unknown]
  - Constipation [Unknown]
  - Diffuse alveolar damage [Fatal]
  - Respiratory failure [Fatal]
  - Sedation [Unknown]
  - Dysphoria [Unknown]
